FAERS Safety Report 17711866 (Version 1)
Quarter: 2020Q2

REPORT INFORMATION
  Report Type: Spontaneous
  Country: US (occurrence: US)
  Receive Date: 20200426
  Receipt Date: 20200426
  Transmission Date: 20200714
  Serious: Yes (Other)
  Sender: FDA-Public Use
  Company Number: None

PATIENT
  Age: 87 Year
  Sex: Male
  Weight: 60.75 kg

DRUGS (4)
  1. AMLODIPINE [Concomitant]
     Active Substance: AMLODIPINE BESYLATE
  2. ENBREL [Suspect]
     Active Substance: ETANERCEPT
     Indication: RHEUMATOID ARTHRITIS
     Dosage: ?          QUANTITY:1 INJECTION(S);?
     Route: 058
  3. MULTIVITAMINS [Concomitant]
     Active Substance: VITAMINS
  4. HYDRA [Concomitant]
     Active Substance: ISONIAZID

REACTIONS (3)
  - Product prescribing error [None]
  - Polycythaemia vera [None]
  - Janus kinase 2 mutation [None]

NARRATIVE: CASE EVENT DATE: 20190518
